FAERS Safety Report 9357895 (Version 1)
Quarter: 2013Q2

REPORT INFORMATION
  Report Type: Spontaneous
  Country: US (occurrence: US)
  Receive Date: 20130620
  Receipt Date: 20130620
  Transmission Date: 20140414
  Serious: Yes (Other)
  Sender: FDA-Public Use
  Company Number: US-BRISTOL-MYERS SQUIBB COMPANY-18758466

PATIENT
  Age: 69 Year
  Sex: Male
  Weight: 102.04 kg

DRUGS (2)
  1. BYDUREON [Suspect]
     Indication: TYPE 2 DIABETES MELLITUS
     Dosage: JUL12-AG12,DC12-ONG.DURATIONTHERAPY:4MNTHS-12,3MTHS-2013-7MNTH.AG12-NV12,RESTAR:MAR13-NV12+MR13(4MTH
     Route: 058
     Dates: start: 201207
  2. METFORMIN HCL [Suspect]
     Indication: TYPE 2 DIABETES MELLITUS
     Route: 048

REACTIONS (6)
  - Pharyngeal oedema [Not Recovered/Not Resolved]
  - Nail growth abnormal [Not Recovered/Not Resolved]
  - Hair growth abnormal [Not Recovered/Not Resolved]
  - Weight decreased [Unknown]
  - Injection site haemorrhage [Recovered/Resolved]
  - Blood glucose abnormal [Unknown]
